FAERS Safety Report 10170287 (Version 3)
Quarter: 2014Q3

REPORT INFORMATION
  Report Type: Report from Study
  Country: US (occurrence: US)
  Receive Date: 20140513
  Receipt Date: 20140701
  Transmission Date: 20150326
  Serious: Yes (Other)
  Sender: FDA-Public Use
  Company Number: US-ACTELION-A-NJ2014-98743

PATIENT
  Age: 78 Year
  Sex: Male

DRUGS (3)
  1. VELETRI [Suspect]
     Active Substance: EPOPROSTENOL
     Indication: SYSTEMIC SCLEROSIS
     Dosage: 20 NG/KG, PER MIN
     Route: 041
     Dates: start: 20140421
  2. TRACLEER [Concomitant]
     Active Substance: BOSENTAN\BOSENTAN MONOHYDRATE
     Indication: PULMONARY ARTERIAL HYPERTENSION
     Route: 048
  3. REVATIO [Concomitant]
     Active Substance: SILDENAFIL CITRATE

REACTIONS (19)
  - Heart valve incompetence [Unknown]
  - Dizziness [Unknown]
  - Dyspnoea [Unknown]
  - Haemoglobin decreased [Unknown]
  - Pain in jaw [Not Recovered/Not Resolved]
  - Oedema peripheral [Unknown]
  - Asthenia [Unknown]
  - Ear pain [Not Recovered/Not Resolved]
  - Constipation [Unknown]
  - Dyspepsia [Not Recovered/Not Resolved]
  - Headache [Unknown]
  - Nausea [Unknown]
  - Insomnia [Unknown]
  - Abdominal pain lower [Recovered/Resolved]
  - Cough [Unknown]
  - Malaise [Unknown]
  - Fatigue [Unknown]
  - Diarrhoea [Not Recovered/Not Resolved]
  - Ascites [Unknown]

NARRATIVE: CASE EVENT DATE: 20140503
